FAERS Safety Report 19313793 (Version 1)
Quarter: 2021Q2

REPORT INFORMATION
  Report Type: Spontaneous
  Country: US (occurrence: US)
  Receive Date: 20210527
  Receipt Date: 20210527
  Transmission Date: 20210717
  Serious: Yes (Hospitalization)
  Sender: FDA-Public Use
  Company Number: None

PATIENT
  Age: 56 Year
  Sex: Female

DRUGS (13)
  1. ENALAPRIL [Concomitant]
     Active Substance: ENALAPRIL
  2. BASAGLAR [Concomitant]
     Active Substance: INSULIN GLARGINE
  3. MONTELUKAST [Concomitant]
     Active Substance: MONTELUKAST SODIUM
  4. FLOVENT [Concomitant]
     Active Substance: FLUTICASONE PROPIONATE
  5. EZETIMIBE. [Concomitant]
     Active Substance: EZETIMIBE
  6. ROSUVASTATIN. [Concomitant]
     Active Substance: ROSUVASTATIN
  7. ADMELOG [Concomitant]
     Active Substance: INSULIN LISPRO
  8. PIQRAY [Suspect]
     Active Substance: ALPELISIB
     Indication: BREAST CANCER
     Route: 048
     Dates: start: 20200904
  9. GLIPIZIDE. [Concomitant]
     Active Substance: GLIPIZIDE
  10. CETIRIZINE [Concomitant]
     Active Substance: CETIRIZINE HYDROCHLORIDE
  11. PIOGLITAZONE. [Concomitant]
     Active Substance: PIOGLITAZONE
  12. TRESIBA [Concomitant]
     Active Substance: INSULIN DEGLUDEC
  13. ALOGLIPTIN. [Concomitant]
     Active Substance: ALOGLIPTIN

REACTIONS (3)
  - Therapy interrupted [None]
  - Blood glucose increased [None]
  - Blood count abnormal [None]

NARRATIVE: CASE EVENT DATE: 20210512
